FAERS Safety Report 6929334-3 (Version None)
Quarter: 2010Q3

REPORT INFORMATION
  Report Type: 
  Country: None (occurrence: None)
  Receive Date: 20100813
  Receipt Date: 20100802
  Transmission Date: 20110219
  Serious: Yes (Hospitalization)
  Sender: FDA-Public Use
  Company Number: 7011648

PATIENT
  Sex: Female

DRUGS (5)
  1. NOVANTRONE [Suspect]
     Indication: MULTIPLE SCLEROSIS
     Dates: start: 20030101, end: 20060101
  2. PREDNISONE [Concomitant]
  3. PROVIGIL [Concomitant]
  4. METHENAMINE HIPPURATE (METHENAMINE HIPPURATE) [Concomitant]
  5. METHENAMINE HIPPURATE(METHENAMINE HIPPURATE) [Concomitant]

REACTIONS (1)
  - CARDIAC FAILURE CONGESTIVE [None]
